FAERS Safety Report 13609911 (Version 4)
Quarter: 2017Q2

REPORT INFORMATION
  Report Type: Report from Study
  Country: None (occurrence: CH)
  Receive Date: 20170603
  Receipt Date: 20170628
  Transmission Date: 20170830
  Serious: Yes (Death, Hospitalization)
  Sender: FDA-Public Use
  Company Number: CH-ABBVIE-17K-151-1994852-00

PATIENT
  Age: 77 Year
  Sex: Male

DRUGS (2)
  1. DUODOPA [Suspect]
     Active Substance: CARBIDOPA\LEVODOPA
     Dosage: MORNING DOSE 3.0ML, CD DAY 6.0ML/H, CR NIGHT 3.0ML, ED3.0ML, 24H THERAPY
     Route: 050
  2. DUODOPA [Suspect]
     Active Substance: CARBIDOPA\LEVODOPA
     Indication: PARKINSON^S DISEASE
     Dosage: MD 3.0ML, CD 6.3ML/H, CONTINUOUS RATE NIGHT 4.0ML/H, ED 3.0ML,24H THERAPY
     Route: 050
     Dates: start: 20140501

REACTIONS (7)
  - Hallucination [Unknown]
  - Chills [Unknown]
  - Death [Fatal]
  - Bradykinesia [Unknown]
  - Device deployment issue [Recovered/Resolved]
  - Drug ineffective [Unknown]
  - Polyneuropathy [Unknown]

NARRATIVE: CASE EVENT DATE: 20170621
